FAERS Safety Report 4799010-4 (Version None)
Quarter: 2005Q4

REPORT INFORMATION
  Report Type: 
  Country: None (occurrence: None)
  Receive Date: 20051013
  Receipt Date: 20050827
  Transmission Date: 20060501
  Serious: Yes (Life-Threatening, Hospitalization)
  Sender: FDA-Public Use
  Company Number: 05GER0191

PATIENT
  Age: 74 Year
  Sex: Male

DRUGS (17)
  1. AGGRASTAT [Suspect]
     Indication: MYOCARDIAL INFARCTION
     Dosage: INITIAL BOLUS DOSE NOT REPORTED; FOLLOWED BY MAINTENANCE OF .1UG/KG/MIN; DROPPED TO 0.05UG/KG/MIN
     Route: 040
     Dates: start: 20050821, end: 20050823
  2. CLOPIDGREL BISULFATE (CLOPIDOGREL SULFATE) [Concomitant]
  3. HEPARIN [Concomitant]
  4. ASPIRIN [Concomitant]
  5. ADRENALIN                 (EPINEPHRINE) (UNKNOWN) [Concomitant]
  6. COSOPT                       (COSOPT) (UNKNOWN) [Concomitant]
  7. MARCUMAR            (PHENPROCOUMON) (UNKNOWN) [Concomitant]
  8. ACETYLCYSTEINE        (ACETYLSYCTEINE)(UNKNOWN) [Concomitant]
  9. ATORVASTATIN        (ATORVASTATIN CALCIUM) (UNKNOWN) [Concomitant]
  10. DIGOXIN [Concomitant]
  11. FUROSEMIDE [Concomitant]
  12. MOXIFLOXACIN HYDROCHLORIDE           (MOXIFLOXACIN HYDROCHLORIDE)(UNKN [Concomitant]
  13. PANTOPRAZOLE SODIUM [Concomitant]
  14. RAMIPRIL [Concomitant]
  15. SODIUM CHLORIDE           (SODIUM CHLORIDE) (UNKNOWN) [Concomitant]
  16. SPIRONOLACTONE             (SPIRONOLACTONE) (UNKNOWN) [Concomitant]
  17. TERAZOSIN HYDROCHLORIDE         (TERAZOSIN HYDROCHLORIDE) (UNKNOWN) [Concomitant]

REACTIONS (6)
  - CONDITION AGGRAVATED [None]
  - PNEUMONIA [None]
  - PSYCHOTIC DISORDER [None]
  - RENAL FAILURE ACUTE [None]
  - THROMBOCYTOPENIA [None]
  - TRANSAMINASES INCREASED [None]
